FAERS Safety Report 14594869 (Version 1)
Quarter: 2018Q1

REPORT INFORMATION
  Report Type: Spontaneous
  Country: US (occurrence: US)
  Receive Date: 20180302
  Receipt Date: 20180302
  Transmission Date: 20180509
  Serious: Yes (Other)
  Sender: FDA-Public Use
  Company Number: US-AKORN PHARMACEUTICALS-2017AKN00571

PATIENT
  Age: 17 Year
  Sex: Male
  Weight: 61.22 kg

DRUGS (7)
  1. MYORISAN [Suspect]
     Active Substance: ISOTRETINOIN
     Indication: ACNE CYSTIC
     Dosage: 30 MG, UNK EVERY OTHER DAY
     Dates: start: 20170312, end: 20170319
  2. CONCERTA [Concomitant]
     Active Substance: METHYLPHENIDATE HYDROCHLORIDE
  3. MYORISAN [Suspect]
     Active Substance: ISOTRETINOIN
     Dosage: 30 MG, 1X/DAY
     Dates: start: 20170319, end: 20170326
  4. MYORISAN [Suspect]
     Active Substance: ISOTRETINOIN
     Dosage: 30 MG, 2X/DAY ALTERNATING WITH 30 MG EVERYDAY
     Dates: start: 20170326, end: 20170402
  5. MYORISAN [Suspect]
     Active Substance: ISOTRETINOIN
     Dosage: 30 MG, 2X/DAY
     Dates: start: 20170402, end: 20170404
  6. MYORISAN [Suspect]
     Active Substance: ISOTRETINOIN
     Dosage: 30 MG, 1X/DAY
     Dates: start: 20170413, end: 20170428
  7. MYORISAN [Suspect]
     Active Substance: ISOTRETINOIN
     Dosage: 30 MG, EVERY 48 HOURS
     Dates: start: 20170326, end: 20170402

REACTIONS (9)
  - Aspartate aminotransferase increased [Recovered/Resolved]
  - Headache [Recovered/Resolved]
  - Staphylococcal skin infection [Recovered/Resolved]
  - Alanine aminotransferase increased [Recovered/Resolved]
  - Blood alkaline phosphatase increased [Recovered/Resolved]
  - Pain [Recovered/Resolved]
  - Viral infection [Recovered/Resolved]
  - Pyrexia [Recovered/Resolved]
  - Folliculitis [Recovered/Resolved]

NARRATIVE: CASE EVENT DATE: 20170403
